FAERS Safety Report 9369473 (Version 1)
Quarter: 2013Q2

REPORT INFORMATION
  Report Type: Spontaneous
  Country: US (occurrence: None)
  Receive Date: 20130625
  Receipt Date: 20130625
  Transmission Date: 20140414
  Serious: Yes (Hospitalization)
  Sender: FDA-Public Use
  Company Number: None

PATIENT
  Age: 20 Year
  Sex: Female
  Weight: 65.77 kg

DRUGS (4)
  1. VENLAFAXINE HCL ER [Suspect]
     Indication: ANXIETY
     Route: 048
     Dates: start: 20130206, end: 20130326
  2. VENLAFAXINE HCL ER [Suspect]
     Indication: DEPRESSION
     Route: 048
     Dates: start: 20130206, end: 20130326
  3. ESCITALOPRAM 20MG [Concomitant]
  4. KROEGER^S WOMEN^S DAILY VITAMINS [Concomitant]

REACTIONS (7)
  - Anger [None]
  - Irritability [None]
  - Depression [None]
  - Suicidal ideation [None]
  - Self-injurious ideation [None]
  - Mental disorder [None]
  - Emotional disorder [None]
